FAERS Safety Report 19090162 (Version 1)
Quarter: 2021Q2

REPORT INFORMATION
  Report Type: Spontaneous
  Country: GB (occurrence: GB)
  Receive Date: 20210404
  Receipt Date: 20210404
  Transmission Date: 20210717
  Serious: Yes (Other)
  Sender: FDA-Public Use
  Company Number: NVSC2021GB050434

PATIENT
  Age: 60 Year
  Sex: Female

DRUGS (4)
  1. RYDAPT [Suspect]
     Active Substance: MIDOSTAURIN
     Indication: ACUTE MYELOID LEUKAEMIA
     Dosage: UNK
     Route: 065
  2. CYTARABINE. [Suspect]
     Active Substance: CYTARABINE
     Indication: ACUTE MYELOID LEUKAEMIA
  3. CYTARABINE. [Suspect]
     Active Substance: CYTARABINE
     Indication: FLT3 GENE MUTATION
     Dosage: UNK
     Route: 065
  4. RYDAPT [Suspect]
     Active Substance: MIDOSTAURIN
     Indication: FLT3 GENE MUTATION
     Dosage: 50 MG, BD, WEEKLY
     Route: 065

REACTIONS (6)
  - Cholecystitis [Unknown]
  - Febrile neutropenia [Unknown]
  - Tongue ulceration [Unknown]
  - Cholelithiasis [Unknown]
  - Minimal residual disease [Unknown]
  - Device related sepsis [Unknown]
